FAERS Safety Report 4712691-6 (Version None)
Quarter: 2005Q3

REPORT INFORMATION
  Report Type: 
  Country: None (occurrence: None)
  Receive Date: 20050701
  Receipt Date: 20040525
  Transmission Date: 20060218
  Serious: Yes (Hospitalization, Other)
  Sender: FDA-Public Use
  Company Number: 2004014969

PATIENT
  Age: 53 Year
  Sex: Female

DRUGS (5)
  1. ZOLOFT [Suspect]
     Indication: DEPRESSION
     Dosage: 100 MG( 1 IN 1 D), ORAL
     Route: 048
     Dates: start: 20040209
  2. ASPIRIN [Suspect]
     Indication: ILL-DEFINED DISORDER
     Dosage: 325 MG (1 IN 1 D), ORAL
     Route: 048
     Dates: start: 20040209, end: 20040302
  3. SUCRALFATE [Concomitant]
  4. ASPIRIN [Concomitant]
  5. MULTIVITAMINS (ASCORIC ACID, ERGOCALCIFEROL, FOLIC ACID, NICOTINAMIDE, [Concomitant]

REACTIONS (2)
  - CONTUSION [None]
  - THROMBOCYTOPENIA [None]
